FAERS Safety Report 9378223 (Version 2)
Quarter: 2013Q3

REPORT INFORMATION
  Report Type: Spontaneous
  Country: US (occurrence: US)
  Receive Date: 20130701
  Receipt Date: 20130702
  Transmission Date: 20140515
  Serious: No
  Sender: FDA-Public Use
  Company Number: US-009507513-1305USA017914

PATIENT
  Age: 44 Year
  Sex: Female
  Weight: 68.27 kg

DRUGS (1)
  1. CLARITIN-D-24 [Suspect]
     Indication: HYPERSENSITIVITY
     Dosage: 10 MG, ONCE
     Route: 048
     Dates: start: 20130525, end: 20130525

REACTIONS (1)
  - Abdominal pain upper [Recovered/Resolved]
